FAERS Safety Report 18870289 (Version 1)
Quarter: 2021Q1

REPORT INFORMATION
  Report Type: Spontaneous
  Country: TH (occurrence: TH)
  Receive Date: 20210210
  Receipt Date: 20210210
  Transmission Date: 20210420
  Serious: Yes (Other)
  Sender: FDA-Public Use
  Company Number: TH-LUPIN PHARMACEUTICALS INC.-2021-01666

PATIENT
  Age: 76 Year
  Sex: Male

DRUGS (6)
  1. GENTAMICIN. [Concomitant]
     Active Substance: GENTAMICIN
     Indication: ENTEROCOCCAL BACTERAEMIA
     Dosage: UNK
     Route: 065
  2. BENZYL PENICILLINE [BENZYLPENICILLIN] [Concomitant]
     Indication: ENDOCARDITIS
  3. BENZYL PENICILLINE [BENZYLPENICILLIN] [Concomitant]
     Indication: ENTEROCOCCAL BACTERAEMIA
     Dosage: UNK
     Route: 065
  4. VANCOMYCIN [Suspect]
     Active Substance: VANCOMYCIN
     Indication: ENTEROCOCCAL BACTERAEMIA
     Dosage: UNK
     Route: 065
  5. VANCOMYCIN [Suspect]
     Active Substance: VANCOMYCIN
     Indication: ENDOCARDITIS
  6. GENTAMICIN. [Concomitant]
     Active Substance: GENTAMICIN
     Indication: ENDOCARDITIS

REACTIONS (1)
  - Drug reaction with eosinophilia and systemic symptoms [Unknown]
